FAERS Safety Report 23846421 (Version 1)
Quarter: 2024Q2

REPORT INFORMATION
  Report Type: Report from Study
  Country: US (occurrence: US)
  Receive Date: 20240513
  Receipt Date: 20240513
  Transmission Date: 20240715
  Serious: Yes (Other)
  Sender: FDA-Public Use
  Company Number: US-ABBVIE-5294027

PATIENT
  Sex: Male

DRUGS (4)
  1. HUMIRA [Suspect]
     Active Substance: ADALIMUMAB
     Indication: Rheumatoid arthritis
     Dosage: CITRATE FREE?FORM STRENGTH 40 MILLIGRAMS
     Route: 058
     Dates: start: 20211014
  2. LISINOPRIL [Concomitant]
     Active Substance: LISINOPRIL
     Indication: Pain
     Dosage: 3-5 YEARS
  3. HYDROCHLOROTHIAZIDE [Concomitant]
     Active Substance: HYDROCHLOROTHIAZIDE
     Indication: Pain
     Dosage: 3-5 YEARS
  4. DROXY [Concomitant]
     Indication: Thyroid pain
     Dosage: 3-5 YEARS

REACTIONS (10)
  - Shoulder arthroplasty [Not Recovered/Not Resolved]
  - Surgery [Recovering/Resolving]
  - Arthralgia [Not Recovered/Not Resolved]
  - Thyroidectomy [Not Recovered/Not Resolved]
  - Fall [Unknown]
  - Drug ineffective [Unknown]
  - Vocal cord paralysis [Not Recovered/Not Resolved]
  - Rotator cuff syndrome [Not Recovered/Not Resolved]
  - Pain [Not Recovered/Not Resolved]
  - Musculoskeletal disorder [Not Recovered/Not Resolved]

NARRATIVE: CASE EVENT DATE: 20220101
